FAERS Safety Report 7900259-X (Version None)
Quarter: 2011Q4

REPORT INFORMATION
  Report Type: 
  Country: None (occurrence: None)
  Receive Date: 20111108
  Receipt Date: 20111027
  Transmission Date: 20120403
  Serious: Yes (Hospitalization)
  Sender: FDA-Public Use
  Company Number: FR-JNJFOC-20111102335

PATIENT
  Sex: Female

DRUGS (14)
  1. CLONAZEPAM [Concomitant]
     Route: 065
  2. KETOPROFEN [Concomitant]
     Route: 065
     Dates: start: 20100209, end: 20100213
  3. METFORMIN HCL [Concomitant]
     Route: 065
  4. LOVENOX [Concomitant]
     Route: 065
  5. MORPHINE SULFATE [Interacting]
     Indication: BACK PAIN
     Route: 048
     Dates: start: 20100212, end: 20100214
  6. ACETAMINOPHEN AND TRAMADOL HCL [Suspect]
     Indication: BACK PAIN
     Dosage: 6DF/ D
     Route: 048
     Dates: start: 20100209, end: 20100212
  7. TETRAZEPAM [Concomitant]
     Route: 065
     Dates: end: 20100214
  8. TRANSIPEG [Concomitant]
     Route: 065
  9. IRBESARTAN AND HYDROCHLOROTHIAZIDE [Concomitant]
     Route: 065
  10. ATENOLOL [Concomitant]
     Route: 065
  11. METFORMIN HCL [Concomitant]
     Route: 065
  12. KETOPROFEN [Concomitant]
     Route: 065
  13. MORPHINE SULFATE [Interacting]
     Indication: BACK PAIN
     Route: 048
     Dates: start: 20100209, end: 20100214
  14. NEXIUM [Concomitant]
     Route: 065

REACTIONS (3)
  - DRUG INTERACTION [None]
  - OVERDOSE [None]
  - ACUTE RESPIRATORY FAILURE [None]
